FAERS Safety Report 20014041 (Version 7)
Quarter: 2024Q4

REPORT INFORMATION
  Report Type: Spontaneous
  Country: US (occurrence: US)
  Receive Date: 20211029
  Receipt Date: 20241212
  Transmission Date: 20250115
  Serious: Yes (Other)
  Sender: AMGEN
  Company Number: US-HORIZON THERAPEUTICS-HZN-2021-005113

PATIENT
  Sex: Female

DRUGS (2)
  1. TEPEZZA [Suspect]
     Active Substance: TEPROTUMUMAB-TRBW
     Indication: Product used for unknown indication
     Dosage: UNK FIRST INFUSION, 90 MINUTES
     Route: 042
  2. TEPEZZA [Suspect]
     Active Substance: TEPROTUMUMAB-TRBW
     Dosage: UNK, EIGHTH INFUSION
     Route: 042
     Dates: start: 20211215

REACTIONS (9)
  - Diabetes mellitus [Unknown]
  - Hypoacusis [Recovering/Resolving]
  - Drug ineffective [Unknown]
  - Ageusia [Not Recovered/Not Resolved]
  - Off label use [Unknown]
  - Tendonitis [Unknown]
  - Muscle spasms [Not Recovered/Not Resolved]
  - Headache [Unknown]
  - Tinnitus [Unknown]
